FAERS Safety Report 16072205 (Version 1)
Quarter: 2019Q1

REPORT INFORMATION
  Report Type: Spontaneous
  Country: US (occurrence: US)
  Receive Date: 20190314
  Receipt Date: 20190314
  Transmission Date: 20190418
  Serious: Yes (Other)
  Sender: FDA-Public Use
  Company Number: US-SA-2018SA066902

PATIENT
  Age: 46 Year
  Sex: Female
  Weight: 94 kg

DRUGS (12)
  1. NEOSAR [Concomitant]
     Active Substance: CYCLOPHOSPHAMIDE
  2. EMEND [FOSAPREPITANT MEGLUMINE] [Concomitant]
     Route: 065
  3. METILPREDNISOLONE [Concomitant]
     Active Substance: METHYLPREDNISOLONE
  4. CITALOPRAM [Concomitant]
     Active Substance: CITALOPRAM HYDROBROMIDE
     Dosage: UNK
     Route: 065
     Dates: start: 200001
  5. ARGININE [Concomitant]
     Active Substance: ARGININE
     Dosage: UNK
     Route: 065
     Dates: start: 200001
  6. CYTOXAN [Concomitant]
     Active Substance: CYCLOPHOSPHAMIDE
  7. HYDROCORTISONE. [Concomitant]
     Active Substance: HYDROCORTISONE
     Route: 065
  8. TAXOTERE [Suspect]
     Active Substance: DOCETAXEL
     Dosage: 154 MG, Q3W
     Route: 042
     Dates: start: 20160311, end: 20160311
  9. PALONOSETRON. [Concomitant]
     Active Substance: PALONOSETRON HYDROCHLORIDE
     Route: 065
  10. ISOSORBIDE. [Concomitant]
     Active Substance: ISOSORBIDE
     Dosage: UNK
     Route: 065
     Dates: start: 200001
  11. TAXOTERE [Suspect]
     Active Substance: DOCETAXEL
     Indication: BREAST CANCER FEMALE
     Dosage: 154 MG, Q3W
     Route: 042
     Dates: start: 20160107, end: 20160107
  12. METROZOLE [METRONIDAZOLE] [Concomitant]
     Dosage: UNK
     Route: 065
     Dates: start: 200001

REACTIONS (2)
  - Alopecia [Recovering/Resolving]
  - Psychological trauma [Unknown]

NARRATIVE: CASE EVENT DATE: 201601
